FAERS Safety Report 5709434-6 (Version None)
Quarter: 2008Q2

REPORT INFORMATION
  Report Type: 
  Country: None (occurrence: None)
  Receive Date: 20080418
  Receipt Date: 20080409
  Transmission Date: 20081010
  Serious: Yes (Other)
  Sender: FDA-Public Use
  Company Number: US-JNJFOC-20080403209

PATIENT
  Sex: Male
  Weight: 104.33 kg

DRUGS (9)
  1. FENTANYL TRANSDERMAL SYSTEM [Suspect]
     Route: 062
  2. FENTANYL TRANSDERMAL SYSTEM [Suspect]
     Indication: BACK PAIN
     Route: 062
  3. OPANA [Concomitant]
     Indication: PAIN
     Route: 048
  4. PERCOCET [Concomitant]
     Indication: PAIN
     Dosage: AS NEEDED
     Route: 048
  5. KLONOPIN [Concomitant]
     Indication: SLEEP DISORDER
     Dosage: AT NIGHT
     Route: 048
  6. CELEBREX [Concomitant]
     Indication: ANTIINFLAMMATORY THERAPY
     Route: 048
  7. UROXATRAL [Concomitant]
     Indication: POLLAKIURIA
     Route: 048
  8. DIOVAN [Concomitant]
     Indication: BLOOD PRESSURE ABNORMAL
     Route: 048
  9. TRAZODONE HCL [Concomitant]
     Indication: SLEEP DISORDER
     Dosage: AT NIGHT
     Route: 048

REACTIONS (8)
  - COLD SWEAT [None]
  - DRUG EFFECT DECREASED [None]
  - DYSPNOEA [None]
  - FALL [None]
  - HYPERHIDROSIS [None]
  - HYPOKINESIA [None]
  - INCORRECT DRUG ADMINISTRATION DURATION [None]
  - INTERVERTEBRAL DISC PROTRUSION [None]
